FAERS Safety Report 19081637 (Version 1)
Quarter: 2021Q1

REPORT INFORMATION
  Report Type: Other
  Country: GB (occurrence: GB)
  Receive Date: 20210331
  Receipt Date: 20210331
  Transmission Date: 20210420
  Serious: Yes (Other)
  Sender: FDA-Public Use
  Company Number: GB-GLENMARK PHARMACEUTICALS-2021GMK053027

PATIENT

DRUGS (2)
  1. ATORVASTATIN [Concomitant]
     Active Substance: ATORVASTATIN
     Indication: ILL-DEFINED DISORDER
     Dosage: UNK
     Route: 065
  2. PRAMIPEXOLE DIHYDROCHLORIDE. [Suspect]
     Active Substance: PRAMIPEXOLE DIHYDROCHLORIDE
     Indication: SMALL FIBRE NEUROPATHY
     Dosage: 0.18 MILLIGRAM, OD
     Route: 048
     Dates: start: 20210305, end: 20210309

REACTIONS (2)
  - Dyspnoea [Recovered/Resolved with Sequelae]
  - Pulmonary congestion [Recovered/Resolved with Sequelae]

NARRATIVE: CASE EVENT DATE: 20210309
